FAERS Safety Report 12485985 (Version 1)
Quarter: 2016Q2

REPORT INFORMATION
  Report Type: Spontaneous
  Country: BR (occurrence: BR)
  Receive Date: 20160621
  Receipt Date: 20160621
  Transmission Date: 20160815
  Serious: Yes (Hospitalization)
  Sender: FDA-Public Use
  Company Number: PHHY2016BR083404

PATIENT
  Sex: Female

DRUGS (4)
  1. CITALOPRAM [Suspect]
     Active Substance: CITALOPRAM HYDROBROMIDE
     Indication: PANIC DISORDER
     Route: 065
  2. SERTRALINE [Suspect]
     Active Substance: SERTRALINE HYDROCHLORIDE
     Indication: PANIC DISORDER
     Route: 065
  3. LUDIOMIL [Suspect]
     Active Substance: MAPROTILINE HYDROCHLORIDE
     Indication: PANIC DISORDER
     Dosage: UNK
     Route: 048
     Dates: start: 1990
  4. IMIPRAMINE HYDROCHLORIDE. [Suspect]
     Active Substance: IMIPRAMINE HYDROCHLORIDE
     Indication: PANIC DISORDER
     Route: 065

REACTIONS (7)
  - Feeling cold [Unknown]
  - Malaise [Unknown]
  - Tremor [Unknown]
  - Blood pressure increased [Unknown]
  - Heart rate increased [Unknown]
  - Hyperhidrosis [Unknown]
  - Panic disorder [Unknown]
